FAERS Safety Report 15644899 (Version 2)
Quarter: 2019Q2

REPORT INFORMATION
  Report Type: Spontaneous
  Country: US (occurrence: US)
  Receive Date: 20181121
  Receipt Date: 20190625
  Transmission Date: 20190711
  Serious: Yes (Other)
  Sender: FDA-Public Use
  Company Number: US-PFIZER INC-2018478701

PATIENT
  Age: 71 Year
  Sex: Male

DRUGS (2)
  1. LISINOPRIL. [Suspect]
     Active Substance: LISINOPRIL
     Dosage: UNK
  2. GLIPIZIDE. [Suspect]
     Active Substance: GLIPIZIDE
     Dosage: UNK

REACTIONS (2)
  - Angioedema [Unknown]
  - Drug hypersensitivity [Unknown]
